FAERS Safety Report 11492460 (Version 1)
Quarter: 2015Q3

REPORT INFORMATION
  Report Type: Report from Study
  Country: US (occurrence: US)
  Receive Date: 20150910
  Receipt Date: 20150910
  Transmission Date: 20151125
  Serious: Yes (Hospitalization, Other)
  Sender: FDA-Public Use
  Company Number: US-BIOMARINAP-US-2015-107333

PATIENT
  Age: 15 Year
  Sex: Male

DRUGS (1)
  1. ALDURAZYME [Suspect]
     Active Substance: LARONIDASE
     Indication: MUCOPOLYSACCHARIDOSIS I
     Dosage: 26.1 MG, QW
     Route: 042
     Dates: start: 201102

REACTIONS (3)
  - Spinal cord compression [Not Recovered/Not Resolved]
  - Near drowning [Recovering/Resolving]
  - Faecal incontinence [Unknown]

NARRATIVE: CASE EVENT DATE: 20150830
